FAERS Safety Report 5628827-9 (Version None)
Quarter: 2008Q1

REPORT INFORMATION
  Report Type: 
  Country: None (occurrence: None)
  Receive Date: 20080215
  Receipt Date: 20080205
  Transmission Date: 20080703
  Serious: Yes (Hospitalization)
  Sender: FDA-Public Use
  Company Number: GB-PFIZER INC-2008012864

PATIENT
  Sex: Female

DRUGS (1)
  1. CHANTIX [Suspect]
     Route: 048

REACTIONS (2)
  - RASH [None]
  - SWELLING [None]
